FAERS Safety Report 9740681 (Version 1)
Quarter: 2013Q4

REPORT INFORMATION
  Report Type: Spontaneous
  Country: US (occurrence: US)
  Receive Date: 20131209
  Receipt Date: 20131209
  Transmission Date: 20140711
  Serious: No
  Sender: FDA-Public Use
  Company Number: US-BIOGENIDEC-2013BI095114

PATIENT
  Age: 61 Year
  Sex: Female
  Weight: 65 kg

DRUGS (8)
  1. TECFIDERA [Suspect]
     Indication: PRODUCT USED FOR UNKNOWN INDICATION
     Route: 048
  2. TECFIDERA [Suspect]
     Indication: PRODUCT USED FOR UNKNOWN INDICATION
     Route: 048
  3. CARVEDILOL [Concomitant]
     Route: 048
  4. TRAVASOL [Concomitant]
  5. SERTRALINE [Concomitant]
     Route: 048
  6. LOSARTAN [Concomitant]
     Route: 048
  7. ASA LOW DOSE [Concomitant]
     Route: 048
  8. VITAMIN D3 [Concomitant]
     Route: 048

REACTIONS (1)
  - Dizziness [Unknown]
